FAERS Safety Report 8571221-1 (Version None)
Quarter: 2012Q3

REPORT INFORMATION
  Report Type: 
  Country: None (occurrence: None)
  Receive Date: 20120730
  Receipt Date: 20120730
  Transmission Date: 20120928
  Serious: No
  Sender: FDA-Public Use
  Company Number: None

PATIENT
  Age: 55 Year
  Sex: Male
  Weight: 84.5 kg

DRUGS (3)
  1. QUETIAPINE [Suspect]
     Indication: BIPOLAR DISORDER
     Dosage: 200 MG, AT BEDTIME, PO
     Route: 048
     Dates: start: 20120525, end: 20120605
  2. QUETIAPINE [Suspect]
     Indication: MANIA
     Dosage: 200 MG, AT BEDTIME, PO
     Route: 048
     Dates: start: 20120525, end: 20120605
  3. QUETIAPINE [Suspect]
     Indication: BIPOLAR I DISORDER
     Dosage: 200 MG, AT BEDTIME, PO
     Route: 048
     Dates: start: 20120525, end: 20120605

REACTIONS (2)
  - SOMNAMBULISM [None]
  - CONFUSIONAL STATE [None]
